APPROVED DRUG PRODUCT: MOVANTIK
Active Ingredient: NALOXEGOL OXALATE
Strength: EQ 25MG BASE
Dosage Form/Route: TABLET;ORAL
Application: N204760 | Product #002
Applicant: AVERITAS PHARMA INC
Approved: Sep 16, 2014 | RLD: Yes | RS: Yes | Type: RX

PATENTS:
Patent 9012469 | Expires: Apr 2, 2032
Patent 7786133 | Expires: Sep 16, 2028